FAERS Safety Report 4372147-X (Version None)
Quarter: 2004Q2

REPORT INFORMATION
  Report Type: 
  Country: None (occurrence: None)
  Receive Date: 20040607
  Receipt Date: 20040528
  Transmission Date: 20050107
  Serious: Yes (Other)
  Sender: FDA-Public Use
  Company Number: GB-MERCK-0406GBR00004

PATIENT
  Age: 89 Year
  Sex: Female

DRUGS (16)
  1. ACETAMINOPHEN [Concomitant]
     Route: 065
  2. ALLOPURINOL [Concomitant]
     Route: 065
  3. AMITRIPTYLINE HYDROCHLORIDE [Concomitant]
     Route: 065
  4. AMOXICILLIN [Concomitant]
     Route: 065
  5. BECLOMETHASONE DIPROPIONATE [Concomitant]
     Route: 055
  6. CARBOMER [Concomitant]
     Route: 065
  7. CIMETIDINE [Concomitant]
     Route: 065
  8. FUROSEMIDE [Concomitant]
     Route: 065
  9. HYDRARGAPHEN [Concomitant]
     Route: 061
  10. ISOSORBIDE MONONITRATE [Concomitant]
     Indication: ANGINA PECTORIS
     Route: 065
  11. LACTULOSE [Concomitant]
     Route: 065
  12. NITROGLYCERIN [Concomitant]
     Route: 065
  13. VIOXX [Suspect]
     Indication: ARTHRALGIA
     Route: 048
     Dates: start: 20040420, end: 20040429
  14. SENNA [Concomitant]
     Route: 065
  15. SPIRONOLACTONE [Concomitant]
     Route: 065
  16. TEMAZEPAM [Concomitant]
     Route: 065

REACTIONS (1)
  - BLOOD CREATININE INCREASED [None]
